FAERS Safety Report 13224855 (Version 1)
Quarter: 2017Q1

REPORT INFORMATION
  Report Type: Spontaneous
  Country: US (occurrence: US)
  Receive Date: 20170213
  Receipt Date: 20170213
  Transmission Date: 20170428
  Serious: No
  Sender: FDA-Public Use
  Company Number: US-TEVA-731331ACC

PATIENT
  Sex: Female

DRUGS (16)
  1. CITALOPRAM [Concomitant]
     Active Substance: CITALOPRAM HYDROBROMIDE
  2. ZOLPIDEM [Concomitant]
     Active Substance: ZOLPIDEM\ZOLPIDEM TARTRATE
  3. MUPIROCIN. [Concomitant]
     Active Substance: MUPIROCIN
  4. PRAMIPEXOLE. [Concomitant]
     Active Substance: PRAMIPEXOLE
  5. BACLOFEN. [Concomitant]
     Active Substance: BACLOFEN
  6. BUT/APAP/CAF [Concomitant]
  7. ALPRAZOLAM. [Concomitant]
     Active Substance: ALPRAZOLAM
  8. MELOXICAM. [Concomitant]
     Active Substance: MELOXICAM
  9. COPAXONE [Suspect]
     Active Substance: GLATIRAMER ACETATE
     Indication: MULTIPLE SCLEROSIS
     Route: 058
     Dates: start: 20150128
  10. OXYCODONE [Concomitant]
     Active Substance: OXYCODONE
  11. SOLU-MEDROL [Concomitant]
     Active Substance: METHYLPREDNISOLONE SODIUM SUCCINATE
  12. CYMBALTA [Concomitant]
     Active Substance: DULOXETINE HYDROCHLORIDE
  13. DEXILANT [Concomitant]
     Active Substance: DEXLANSOPRAZOLE
  14. TEMAZEPAM. [Concomitant]
     Active Substance: TEMAZEPAM
  15. AMPYRA [Concomitant]
     Active Substance: DALFAMPRIDINE
  16. MOVANTIK [Concomitant]
     Active Substance: NALOXEGOL OXALATE

REACTIONS (3)
  - Muscular weakness [Unknown]
  - Balance disorder [Unknown]
  - Drug dose omission [Unknown]

NARRATIVE: CASE EVENT DATE: 2016
